FAERS Safety Report 6811769-0 (Version None)
Quarter: 2010Q3

REPORT INFORMATION
  Report Type: 
  Country: None (occurrence: None)
  Receive Date: 20100701
  Receipt Date: 20100113
  Transmission Date: 20110219
  Serious: Yes (Other)
  Sender: FDA-Public Use
  Company Number: US-ASTRAZENECA-2007UW08561

PATIENT
  Age: 37 Year
  Sex: Male

DRUGS (10)
  1. SEROQUEL [Suspect]
     Dosage: 200 MG ONE PO AM AND TWO PO HS
     Route: 048
     Dates: start: 20030304
  2. ZYPREXA [Concomitant]
     Route: 048
     Dates: start: 20030114
  3. PROZAC [Concomitant]
     Route: 048
     Dates: start: 20030114
  4. PREVACID [Concomitant]
     Route: 048
     Dates: start: 20030206
  5. IBUPROFEN [Concomitant]
     Route: 048
     Dates: start: 20030206
  6. FLEXERIL [Concomitant]
     Route: 048
     Dates: start: 20030206
  7. ABILIFY [Concomitant]
     Dosage: 10 MG DISPENSED, 15 MG ONE PO Q DAY
     Route: 048
     Dates: start: 20030521
  8. HALDOL [Concomitant]
     Route: 048
     Dates: start: 20030521
  9. TRICOR [Concomitant]
     Route: 048
     Dates: start: 20070330
  10. LISINOPRIL [Concomitant]
     Route: 048
     Dates: start: 20070330

REACTIONS (2)
  - DIABETIC NEUROPATHY [None]
  - INSULIN-REQUIRING TYPE 2 DIABETES MELLITUS [None]
